FAERS Safety Report 10904045 (Version 2)
Quarter: 2015Q3

REPORT INFORMATION
  Report Type: Spontaneous
  Country: IT (occurrence: IT)
  Receive Date: 20150311
  Receipt Date: 20150819
  Transmission Date: 20151125
  Serious: Yes (Hospitalization)
  Sender: FDA-Public Use
  Company Number: IT-NOVOPROD-440833

PATIENT
  Age: 62 Year
  Sex: Male

DRUGS (7)
  1. NOVOMIX [Suspect]
     Active Substance: INSULIN ASPART
     Indication: DIABETES MELLITUS
     Dosage: 24 IU, QD
     Route: 058
  2. APIDRA [Suspect]
     Active Substance: INSULIN GLULISINE
     Indication: DIABETES MELLITUS
     Dosage: 80 IU, QD
     Route: 058
     Dates: start: 20150131
  3. INDERAL [Concomitant]
     Active Substance: PROPRANOLOL HYDROCHLORIDE
     Dosage: UNK
     Route: 065
  4. PORTOLAC [Concomitant]
     Active Substance: LACTITOL
     Dosage: UNK
     Route: 065
  5. NORMIX [Concomitant]
     Active Substance: RIFAXIMIN
     Dosage: UNK
     Route: 065
  6. NOVOMIX [Suspect]
     Active Substance: INSULIN ASPART
     Dosage: 30 IU/DIE
     Route: 058
     Dates: start: 20150131
  7. ANTRA                              /00661201/ [Concomitant]
     Active Substance: OMEPRAZOLE
     Dosage: UNK
     Route: 065

REACTIONS (4)
  - Syncope [Recovering/Resolving]
  - Wound [Recovering/Resolving]
  - Drop attacks [Recovering/Resolving]
  - Hypoglycaemia [Recovering/Resolving]

NARRATIVE: CASE EVENT DATE: 20150228
